FAERS Safety Report 21643766 (Version 1)
Quarter: 2022Q4

REPORT INFORMATION
  Report Type: Spontaneous
  Country: NL (occurrence: NL)
  Receive Date: 20221125
  Receipt Date: 20221125
  Transmission Date: 20230113
  Serious: Yes (Disabling, Other)
  Sender: FDA-Public Use
  Company Number: NL-ORGANON-O2211NLD001813

PATIENT
  Sex: Female

DRUGS (2)
  1. EZETIMIBE [Suspect]
     Active Substance: EZETIMIBE
     Dosage: TAKE EVERY DAY
     Route: 048
     Dates: start: 2015
  2. EZETIMIBE [Suspect]
     Active Substance: EZETIMIBE
     Dosage: UNK
     Route: 048

REACTIONS (12)
  - Spinal cord injury [Unknown]
  - Brain injury [Unknown]
  - Cardiac arrest [Unknown]
  - Hypoxia [Unknown]
  - Heart rate increased [Unknown]
  - Abdominal discomfort [Unknown]
  - Fatigue [Unknown]
  - Myalgia [Unknown]
  - Nausea [Unknown]
  - Dizziness [Unknown]
  - Hypertension [Unknown]
  - Product quality issue [Unknown]

NARRATIVE: CASE EVENT DATE: 20220101
